FAERS Safety Report 4344899-6 (Version None)
Quarter: 2004Q2

REPORT INFORMATION
  Report Type: 
  Country: None (occurrence: None)
  Receive Date: 20040420
  Receipt Date: 20040409
  Transmission Date: 20050107
  Serious: Yes (Death)
  Sender: FDA-Public Use
  Company Number: 04P-056-0248945-00

PATIENT
  Age: 38 Year
  Sex: Male
  Weight: 72 kg

DRUGS (2)
  1. KALETRA [Suspect]
     Indication: HIV INFECTION
     Dosage: PER ORAL
     Route: 048
     Dates: start: 20031210
  2. NEVIRAPINE [Suspect]
     Indication: HIV INFECTION
     Dosage: PER ORAL
     Route: 048
     Dates: start: 20031210

REACTIONS (8)
  - DYSPHAGIA [None]
  - EAR, NOSE AND THROAT EXAMINATION ABNORMAL [None]
  - GASTROINTESTINAL DISORDER [None]
  - LUNG DISORDER [None]
  - MULTI-ORGAN FAILURE [None]
  - PSEUDOMONAL SEPSIS [None]
  - STEVENS-JOHNSON SYNDROME [None]
  - TOXIC EPIDERMAL NECROLYSIS [None]
